FAERS Safety Report 5006878-5 (Version None)
Quarter: 2006Q2

REPORT INFORMATION
  Report Type: 
  Country: None (occurrence: None)
  Receive Date: 20060519
  Receipt Date: 20060509
  Transmission Date: 20061013
  Serious: Yes (Life-Threatening, Hospitalization, Disabling, Other)
  Sender: FDA-Public Use
  Company Number: US-BRISTOL-MYERS SQUIBB COMPANY-13372156

PATIENT
  Age: 5 Year
  Sex: Male
  Weight: 18 kg

DRUGS (17)
  1. CEFZIL [Suspect]
     Indication: PHARYNGITIS
     Route: 048
     Dates: start: 20030704, end: 20030705
  2. CEFAZOLIN [Suspect]
     Indication: PHARYNGITIS
     Route: 042
     Dates: start: 20030705
  3. CEFUROXIME [Suspect]
     Indication: PHARYNGITIS
     Dosage: 600 MG ON 06-JUL-2003
     Route: 042
     Dates: start: 20030705, end: 20030706
  4. CHILDREN'S MOTRIN [Suspect]
     Indication: PYREXIA
     Dosage: SUSPENSION-AS NECESSARY
     Dates: start: 20030703, end: 20030705
  5. CHILDREN'S MOTRIN [Suspect]
     Dates: start: 20030707, end: 20030711
  6. CEFOXITIN [Suspect]
     Indication: PHARYNGITIS
     Route: 042
     Dates: start: 20030706, end: 20030708
  7. POTASSIUM CHLORIDE [Concomitant]
     Dosage: 8 HOUR AS NEEDED
  8. HYDROCORTISONE [Concomitant]
     Indication: ECZEMA
  9. TYLENOL (CAPLET) [Concomitant]
     Indication: PYREXIA
     Dates: start: 20030702
  10. FLUCONAZOLE [Concomitant]
     Dosage: ENTERAL
  11. ATIVAN [Concomitant]
     Dosage: ENTERAL
  12. LANSOPRAZOLE [Concomitant]
     Dosage: ENTERAL
  13. ALDACTONE [Concomitant]
     Dosage: ENTERAL
  14. FUROSEMIDE [Concomitant]
     Route: 042
  15. FENTANYL [Concomitant]
     Dosage: 50 MCH/HR CONTINUOUS VIA J-TUBE/BOLUS; 25-50 MECG IV EVERY 1 HOUR AS NEEDED
  16. CIPROFLOXACIN [Concomitant]
     Dosage: DROPS
     Route: 047
  17. LACRI-LUBE [Concomitant]

REACTIONS (16)
  - ANXIETY [None]
  - BLINDNESS [None]
  - CARDIAC FAILURE [None]
  - CARDIOMYOPATHY [None]
  - ERYTHEMA MULTIFORME [None]
  - ESCHERICHIA INFECTION [None]
  - EYE DISORDER [None]
  - FUNGAL INFECTION [None]
  - PERICARDIAL EFFUSION [None]
  - PERICARDITIS [None]
  - RENAL FAILURE [None]
  - RESPIRATORY DISTRESS [None]
  - STAPHYLOCOCCAL INFECTION [None]
  - STEVENS-JOHNSON SYNDROME [None]
  - TOXIC EPIDERMAL NECROLYSIS [None]
  - ULCERATIVE KERATITIS [None]
